FAERS Safety Report 18981930 (Version 2)
Quarter: 2021Q1

REPORT INFORMATION
  Report Type: Spontaneous
  Country: TR (occurrence: TR)
  Receive Date: 20210308
  Receipt Date: 20210310
  Transmission Date: 20210420
  Serious: Yes (Life-Threatening)
  Sender: FDA-Public Use
  Company Number: NVSC2021TR050266

PATIENT
  Age: 88 Year
  Sex: Female

DRUGS (1)
  1. NITRODERM [Suspect]
     Active Substance: NITROGLYCERIN
     Indication: CARDIAC FAILURE
     Dosage: 30 PATCH
     Route: 065

REACTIONS (3)
  - Adverse event [Unknown]
  - Product supply issue [Unknown]
  - Product dose omission issue [Unknown]
